FAERS Safety Report 18363071 (Version 5)
Quarter: 2023Q2

REPORT INFORMATION
  Report Type: Report from Study
  Country: CA (occurrence: CA)
  Receive Date: 20201008
  Receipt Date: 20230607
  Transmission Date: 20230721
  Serious: Yes (Other)
  Sender: FDA-Public Use
  Company Number: CA-BAUSCH-BL-2019-058776

PATIENT
  Sex: Male
  Weight: 126.53 kg

DRUGS (15)
  1. CONTRAVE [Suspect]
     Active Substance: BUPROPION HYDROCHLORIDE\NALTREXONE HYDROCHLORIDE
     Indication: Weight control
     Dosage: 8 MG/90 MG START DATE: 15/JUL/2019 (APPROXIMATELY) (1 DOSAGE FORMS, 1 IN 1 D)
     Route: 048
     Dates: start: 201907, end: 20190721
  2. CONTRAVE [Suspect]
     Active Substance: BUPROPION HYDROCHLORIDE\NALTREXONE HYDROCHLORIDE
     Dosage: 8 MG/90 MG (1 DOSAGE FORMS, 1 IN 12 HR)
     Route: 048
     Dates: start: 20190722, end: 20190728
  3. CONTRAVE [Suspect]
     Active Substance: BUPROPION HYDROCHLORIDE\NALTREXONE HYDROCHLORIDE
     Dosage: 2 TABLETS IN MORNING, 1 TABLET IN EVENING; 8 MG/ 90 MG (1 IN 12 HR)
     Route: 048
     Dates: start: 20190729, end: 20190804
  4. CONTRAVE [Suspect]
     Active Substance: BUPROPION HYDROCHLORIDE\NALTREXONE HYDROCHLORIDE
     Dosage: 90/8MG, 2 TABS BID
     Route: 048
     Dates: start: 20190805, end: 20230523
  5. CONTRAVE [Suspect]
     Active Substance: BUPROPION HYDROCHLORIDE\NALTREXONE HYDROCHLORIDE
     Dosage: 90/8MG, 2 TABS AM, 1 TAB PM
     Route: 048
     Dates: start: 20230524
  6. OZEMPIC [Suspect]
     Active Substance: SEMAGLUTIDE
     Indication: Weight decreased
     Dosage: ON MONDAYS (1 IN 1 WK)
     Route: 065
  7. GABAPENTIN [Concomitant]
     Active Substance: GABAPENTIN
     Indication: Restless legs syndrome
     Dosage: AT NIGHT (400 MG, 1 IN 1 D)
     Route: 048
  8. TRINTELLIX [Concomitant]
     Active Substance: VORTIOXETINE HYDROBROMIDE
     Indication: Anxiety
     Dosage: DAILY (10 MG, 1 IN 1 D)
     Route: 048
  9. MODAFINIL [Concomitant]
     Active Substance: MODAFINIL
     Indication: Apathy
     Dosage: 400 MG (200 MG, 1 IN 12 HR)
     Route: 048
  10. LEVODOPA [Concomitant]
     Active Substance: LEVODOPA
     Indication: Parkinson^s disease
     Dosage: 4.5 MG (1.5 MG, 1 IN 8 HR)
     Route: 048
  11. LEVODOPA [Concomitant]
     Active Substance: LEVODOPA
     Dosage: 4 DOSAGE FORMS (2 DOSAGE FORMS, 1 IN 12 HR)
     Route: 048
  12. LEVODOPA [Concomitant]
     Active Substance: LEVODOPA
     Dosage: LEVODOPA SLOW RELEASE.(BEDTIME) (1 DOSAGE FORMS,1 IN 1 D)
     Route: 048
  13. PANTOPRAZOLE [Concomitant]
     Active Substance: PANTOPRAZOLE
     Indication: Gastrointestinal disorder
     Dosage: DAILY (40 MG, 1 IN 1 D)
     Route: 048
  14. QUINAPRIL [Concomitant]
     Active Substance: QUINAPRIL
     Indication: Hypertension
     Dosage: DAILY (10 MG, 1 IN 1 D)
     Route: 048
  15. CLONAZEPAM [Concomitant]
     Active Substance: CLONAZEPAM
     Indication: Sleep disorder
     Dosage: BEDTIME (0.25 MG, 1 IN 1 D)
     Route: 048
     Dates: start: 202005

REACTIONS (15)
  - Parkinson^s disease [Not Recovered/Not Resolved]
  - Hypotension [Unknown]
  - Loss of consciousness [Unknown]
  - Food aversion [Not Recovered/Not Resolved]
  - Thirst decreased [Not Recovered/Not Resolved]
  - Gastrooesophageal reflux disease [Unknown]
  - Eye movement disorder [Unknown]
  - Blood pressure decreased [Unknown]
  - Sleep disorder [Unknown]
  - Presyncope [Unknown]
  - Nausea [Recovered/Resolved]
  - Constipation [Not Recovered/Not Resolved]
  - Fatigue [Unknown]
  - Vomiting [Recovered/Resolved]
  - Intentional product use issue [Unknown]

NARRATIVE: CASE EVENT DATE: 20190101
